FAERS Safety Report 20547460 (Version 6)
Quarter: 2022Q3

REPORT INFORMATION
  Report Type: Report from Study
  Country: CA (occurrence: CA)
  Receive Date: 20220303
  Receipt Date: 20220914
  Transmission Date: 20221026
  Serious: Yes (Death, Hospitalization, Other)
  Sender: FDA-Public Use
  Company Number: CA-GILEAD-2022-0571635

PATIENT
  Age: 40 Year
  Sex: Female

DRUGS (9)
  1. SACITUZUMAB GOVITECAN [Suspect]
     Active Substance: SACITUZUMAB GOVITECAN
     Indication: Triple negative breast cancer
     Dosage: 375 MG
     Route: 042
     Dates: start: 20220217, end: 20220825
  2. SACITUZUMAB GOVITECAN [Suspect]
     Active Substance: SACITUZUMAB GOVITECAN
     Dosage: 351 MG (DAY 8)
     Route: 042
     Dates: start: 20220324
  3. SACITUZUMAB GOVITECAN [Suspect]
     Active Substance: SACITUZUMAB GOVITECAN
     Dosage: 420 MG
     Route: 042
  4. SACITUZUMAB GOVITECAN [Suspect]
     Active Substance: SACITUZUMAB GOVITECAN
     Dosage: 355 MG
     Route: 042
  5. SACITUZUMAB GOVITECAN [Suspect]
     Active Substance: SACITUZUMAB GOVITECAN
     Dosage: C4D1, C4D8 DELAYED ON 18-MAY-2022
     Route: 042
     Dates: start: 20220428, end: 20220518
  6. SACITUZUMAB GOVITECAN [Suspect]
     Active Substance: SACITUZUMAB GOVITECAN
     Dosage: 375 MG
     Route: 042
     Dates: start: 20220609
  7. SACITUZUMAB GOVITECAN [Suspect]
     Active Substance: SACITUZUMAB GOVITECAN
     Dosage: UNSPECIFIED CYCLE, DAY 1, 375 MG
     Route: 042
     Dates: start: 20220630, end: 20220707
  8. SACITUZUMAB GOVITECAN [Suspect]
     Active Substance: SACITUZUMAB GOVITECAN
     Dosage: 350 MG
     Route: 042
  9. GEMCITABINE [Concomitant]
     Active Substance: GEMCITABINE
     Dosage: UNK MG

REACTIONS (25)
  - Death [Fatal]
  - Varices oesophageal [Unknown]
  - Portal vein thrombosis [Unknown]
  - Hepatic cirrhosis [Unknown]
  - Hypotension [Not Recovered/Not Resolved]
  - Hypotension [Not Recovered/Not Resolved]
  - Feeling abnormal [Not Recovered/Not Resolved]
  - Nasopharyngitis [Not Recovered/Not Resolved]
  - Oropharyngeal pain [Not Recovered/Not Resolved]
  - Hepatic enzyme increased [Unknown]
  - Cough [Unknown]
  - Weight decreased [Unknown]
  - Weight decreased [Unknown]
  - Weight increased [Unknown]
  - Heart rate increased [Unknown]
  - Weight decreased [Unknown]
  - Hypotension [Unknown]
  - Decreased activity [Unknown]
  - Infection [Unknown]
  - Skin infection [Recovering/Resolving]
  - Weight decreased [Not Recovered/Not Resolved]
  - Diarrhoea [Unknown]
  - Off label use [Unknown]
  - Intentional dose omission [Unknown]
  - Inappropriate schedule of product administration [Recovered/Resolved]

NARRATIVE: CASE EVENT DATE: 20220224
